FAERS Safety Report 10170273 (Version 1)
Quarter: 2014Q2

REPORT INFORMATION
  Report Type: Spontaneous
  Country: JP (occurrence: JP)
  Receive Date: 20140513
  Receipt Date: 20140513
  Transmission Date: 20141212
  Serious: Yes (Hospitalization)
  Sender: FDA-Public Use
  Company Number: JP-ELI_LILLY_AND_COMPANY-JP201405000371

PATIENT
  Age: 68 Year
  Sex: Female
  Weight: 48 kg

DRUGS (24)
  1. ALIMTA [Suspect]
     Indication: LUNG ADENOCARCINOMA STAGE IV
     Dosage: 700 MG, OTHER
     Route: 042
     Dates: start: 20130523, end: 20131210
  2. AVASTIN                            /01555201/ [Suspect]
     Indication: LUNG ADENOCARCINOMA STAGE IV
     Dosage: 700 MG, OTHER
     Route: 042
     Dates: start: 20130523, end: 20131210
  3. CARBOPLATIN [Suspect]
     Indication: LUNG ADENOCARCINOMA STAGE IV
     Dosage: 450 MG, OTHER
     Route: 042
     Dates: start: 20130614, end: 20130913
  4. EMEND                              /01627301/ [Concomitant]
     Dosage: UNK
     Route: 048
  5. MEDICON                            /00048102/ [Concomitant]
     Route: 048
  6. GRANISETRON [Concomitant]
  7. DEXART [Concomitant]
     Route: 042
  8. ALLEGRA [Concomitant]
     Route: 048
  9. PANVITAN                           /00466101/ [Concomitant]
     Route: 048
  10. PURSENNID                          /00571902/ [Concomitant]
     Route: 048
  11. FOSAPREPITANT MEGLUMINE [Concomitant]
     Route: 042
  12. JANUVIA [Concomitant]
     Route: 048
  13. NIZATIDINE [Concomitant]
     Route: 048
  14. POLAPREZINC [Concomitant]
     Route: 048
  15. CYTOTEC [Concomitant]
     Route: 048
  16. DICLOFENAC SODIUM [Concomitant]
  17. ZETIA [Concomitant]
     Route: 048
  18. VOGLIBOSE [Concomitant]
     Route: 048
  19. PROGRAF [Concomitant]
  20. ATORVASTATIN [Concomitant]
     Route: 048
  21. PREDNISOLONE [Concomitant]
  22. TALION                             /01587402/ [Concomitant]
     Route: 048
  23. MICARDIS [Concomitant]
     Route: 048
  24. ACTEMRA [Concomitant]
     Dosage: UNK
     Route: 042
     Dates: start: 201311

REACTIONS (2)
  - Peritonitis [Recovering/Resolving]
  - Peritonitis [Recovered/Resolved]
